FAERS Safety Report 8335184-6 (Version None)
Quarter: 2012Q2

REPORT INFORMATION
  Report Type: 
  Country: None (occurrence: None)
  Receive Date: 20120503
  Receipt Date: 20120423
  Transmission Date: 20120825
  Serious: Yes (Hospitalization)
  Sender: FDA-Public Use
  Company Number: BE-ABBOTT-12P-013-0928236-06

PATIENT
  Sex: Female

DRUGS (14)
  1. PANTOPRAZOLE [Concomitant]
     Indication: ABDOMINAL PAIN UPPER
     Dates: start: 20090401, end: 20090901
  2. PANTOPRAZOLE [Concomitant]
     Dates: start: 20091201, end: 20120207
  3. CETIRIZINE [Concomitant]
     Indication: HYPERSENSITIVITY
     Dates: start: 20110101
  4. HUMIRA [Suspect]
     Indication: CROHN'S DISEASE
     Route: 058
     Dates: start: 20080328
  5. REMICADE [Concomitant]
     Indication: CROHN'S DISEASE
     Dates: start: 20110817
  6. LORAZEPAM [Concomitant]
     Indication: INSOMNIA
     Dates: start: 20110101
  7. LORAZEPAM [Concomitant]
     Dates: start: 20120129, end: 20120129
  8. HUMIRA [Suspect]
     Route: 058
     Dates: start: 20080501, end: 20090701
  9. EFFEXOR [Concomitant]
     Indication: INSOMNIA
     Dates: start: 20090703, end: 20090708
  10. PANTOPRAZOLE [Concomitant]
     Dates: start: 20120208, end: 20120218
  11. EFFEXOR [Concomitant]
     Dates: start: 20090801
  12. ACETAMINOPHEN [Concomitant]
     Indication: ABDOMINAL PAIN
     Dates: start: 20090705, end: 20090705
  13. ZOLPIDEM [Concomitant]
     Indication: INSOMNIA
     Dates: start: 20110101
  14. ACETAMINOPHEN [Concomitant]
     Indication: PAIN
     Dates: start: 20090801

REACTIONS (1)
  - INCISIONAL HERNIA [None]
